FAERS Safety Report 7498559-3 (Version None)
Quarter: 2011Q2

REPORT INFORMATION
  Report Type: 
  Country: None (occurrence: None)
  Receive Date: 20110516
  Receipt Date: 20110502
  Transmission Date: 20111010
  Serious: Yes (Hospitalization)
  Sender: FDA-Public Use
  Company Number: 032177

PATIENT
  Sex: Female

DRUGS (3)
  1. LAMOTRIGINE [Concomitant]
  2. KEPPRA [Suspect]
     Indication: EPILEPSY
     Dosage: 750 MG BID, ORAL; 500 MG BID ORAL;
     Route: 048
     Dates: start: 20110101
  3. KEPPRA [Suspect]
     Indication: EPILEPSY
     Dosage: 750 MG BID, ORAL; 500 MG BID ORAL;
     Route: 048
     Dates: start: 20100101, end: 20110101

REACTIONS (2)
  - DRUG EXPOSURE DURING PREGNANCY [None]
  - EPILEPSY [None]
